FAERS Safety Report 25758019 (Version 2)
Quarter: 2025Q4

REPORT INFORMATION
  Report Type: Report from Study
  Country: KR (occurrence: KR)
  Receive Date: 20250903
  Receipt Date: 20251217
  Transmission Date: 20260117
  Serious: Yes (Death, Other)
  Sender: ABBVIE
  Company Number: KR-ABBVIE-6442508

PATIENT
  Age: 80 Year
  Sex: Male
  Weight: 48 kg

DRUGS (37)
  1. VENCLEXTA [Suspect]
     Active Substance: VENETOCLAX
     Indication: Acute myeloid leukaemia
     Route: 048
     Dates: start: 20250406, end: 20250406
  2. VENCLEXTA [Suspect]
     Active Substance: VENETOCLAX
     Indication: Acute myeloid leukaemia
     Route: 048
     Dates: start: 20250404, end: 20250404
  3. VENCLEXTA [Suspect]
     Active Substance: VENETOCLAX
     Indication: Acute myeloid leukaemia
     Route: 048
     Dates: start: 20250407, end: 20250428
  4. VENCLEXTA [Suspect]
     Active Substance: VENETOCLAX
     Indication: Acute myeloid leukaemia
     Route: 048
     Dates: start: 20250405, end: 20250405
  5. K contin continus [Concomitant]
     Indication: Hypokalaemia
     Dosage: TIME INTERVAL: 0.33333333 DAYS
     Route: 048
     Dates: start: 20250428, end: 20250430
  6. GLUCOPHAGE [Concomitant]
     Active Substance: METFORMIN HYDROCHLORIDE
     Indication: Diabetes mellitus
     Dosage: STRENGTH:  500MG
     Route: 048
     Dates: start: 20250406, end: 20250429
  7. ALLOPURINOL [Concomitant]
     Active Substance: ALLOPURINOL
     Indication: Prophylaxis
     Dosage: TIME INTERVAL: 0.33333333 DAYS: STRENGTH:100MG
     Route: 048
     Dates: start: 20250404, end: 20250430
  8. Sinil pyridoxine [Concomitant]
     Indication: Nervous system disorder prophylaxis
     Dosage: STRENGTH: 50MG
     Route: 048
     Dates: start: 20250404, end: 20250429
  9. PLAVIX [Concomitant]
     Active Substance: CLOPIDOGREL BISULFATE
     Indication: Myocardial infarction
     Dosage: STRENGTH: 75MG
     Route: 048
     Dates: end: 20250405
  10. Sinil folic acid [Concomitant]
     Indication: Nutritional supplementation
     Dosage: STRENGTH: 1MG
     Route: 048
     Dates: start: 20250404, end: 20250429
  11. Immualpha [Concomitant]
     Indication: Infection prophylaxis
     Dosage: UNIT DOSE: 1 VIAL, IMMUNE ALPHA 1.6MG
     Route: 058
     Dates: start: 20250404, end: 20250404
  12. URSODIOL [Concomitant]
     Active Substance: URSODIOL
     Indication: Prophylaxis
     Dosage: TIME INTERVAL: 0.33333333 DAYS: STRENGTH:100MG
     Route: 048
     Dates: start: 20250423, end: 20250430
  13. MECKOOL [Concomitant]
     Indication: Nausea
     Dosage: TIME INTERVAL: AS NECESSARY
     Route: 042
     Dates: start: 20250421, end: 20250430
  14. Samjin metformin [Concomitant]
     Indication: Diabetes mellitus
     Route: 048
     Dates: end: 20250405
  15. LEVOFLOXACIN [Concomitant]
     Active Substance: LEVOFLOXACIN
     Indication: Infection prophylaxis
     Route: 048
     Dates: start: 20250425, end: 20250429
  16. LEVOFLOXACIN [Concomitant]
     Active Substance: LEVOFLOXACIN
     Indication: Infection prophylaxis
     Dosage: STRENGTH: 500MG
     Route: 048
     Dates: start: 20250404, end: 20250424
  17. NOXAFIL [Concomitant]
     Active Substance: POSACONAZOLE
     Indication: Infection prophylaxis
     Dosage: GASTRO RESISTANT TAB 100MG
     Route: 048
     Dates: start: 20250404, end: 20250429
  18. VENITOL [Concomitant]
     Indication: Varicose vein
     Route: 048
     Dates: start: 20250415, end: 20250429
  19. OLIMEL E [Concomitant]
     Active Substance: AMINO ACIDS\DEXTROSE\ELECTROLYTES NOS\SOYBEAN OIL
     Indication: Nutritional supplementation
     Dosage: 1L
     Route: 042
     Dates: start: 20250430, end: 20250430
  20. M-COBAL [Concomitant]
     Indication: Nervous system disorder prophylaxis
     Dosage: STRENGTH: 500MCG
     Route: 048
     Dates: start: 20250404, end: 20250429
  21. ISOSORBIDE MONONITRATE [Concomitant]
     Active Substance: ISOSORBIDE MONONITRATE
     Indication: Myocardial infarction
     Dosage: ER ?STRENGTH: 60MG
     Route: 048
     Dates: end: 20250405
  22. ACYCLOVIR [Concomitant]
     Active Substance: ACYCLOVIR
     Indication: Infection prophylaxis
     Dosage: STRENGTH: 200MG
     Route: 048
     Dates: start: 20250425, end: 20250429
  23. FREAMINE III NOS [Concomitant]
     Active Substance: AMINO ACIDS
     Indication: Nutritional supplementation
     Dosage: 10% NJ 500ML (BAG)
     Route: 042
     Dates: start: 20250422, end: 20250430
  24. SMOFLIPID [Concomitant]
     Active Substance: FISH OIL\MEDIUM-CHAIN TRIGLYCERIDES\OLIVE OIL\SOYBEAN OIL
     Indication: Nutritional supplementation
     Dosage: 20%
     Route: 042
     Dates: start: 20250421, end: 20250430
  25. LASIX [Concomitant]
     Active Substance: FUROSEMIDE
     Indication: Oedema
     Dosage: TIME INTERVAL: AS NECESSARY: PRN
     Route: 042
     Dates: start: 20250410, end: 20250427
  26. Zoylex [Concomitant]
     Indication: Infection prophylaxis
     Dosage: STRENGTH: 400MG
     Route: 048
     Dates: start: 20250414, end: 20250424
  27. ALDACTONE [Concomitant]
     Active Substance: SPIRONOLACTONE
     Indication: Oedema
     Dosage: FILM COATED TAB 25MG
     Route: 048
     Dates: start: 20250423, end: 20250429
  28. POTASSIUM CHLORIDE [Concomitant]
     Active Substance: POTASSIUM CHLORIDE
     Indication: Hypokalaemia
     Dosage: TIME INTERVAL: AS NECESSARY: PRN?STRENGTH: 20 ML
     Route: 042
     Dates: start: 20250421, end: 20250501
  29. DEBIKIN [Concomitant]
     Indication: Acute myeloid leukaemia
     Route: 042
     Dates: start: 20250404, end: 20250408
  30. VAROSC [Concomitant]
     Indication: Hypertension
     Dosage: STRENGTH: 5MG
     Route: 048
     Dates: end: 20250405
  31. Yuhan vitamin c [Concomitant]
     Indication: Nutritional supplementation
     Dosage: STRENGTH: 1000MG
     Route: 048
     Dates: start: 20250404, end: 20250429
  32. Furix [Concomitant]
     Indication: Oedema
     Dosage: STRENGTH: 40MG
     Route: 048
     Dates: start: 20250424, end: 20250427
  33. Furix [Concomitant]
     Indication: Oedema
     Dosage: STRENGTH: 40MG
     Route: 048
     Dates: start: 20250414, end: 20250423
  34. ENTELON [Concomitant]
     Indication: Varicose vein
     Dosage: STRENGTH: 150MG
     Route: 048
     Dates: end: 20250429
  35. Boryungbio astrix [Concomitant]
     Indication: Myocardial infarction
     Dosage: STRENGTH: 100MG
     Route: 048
     Dates: end: 20250405
  36. NORVASC [Concomitant]
     Active Substance: AMLODIPINE BESYLATE
     Indication: Hypertension
     Dosage: STRENGTH: 5 MG
     Route: 048
     Dates: start: 20250406, end: 20250429
  37. Eltan sr [Concomitant]
     Indication: Myocardial infarction
     Dosage: SR? STRENGTH: 60MG
     Route: 048
     Dates: start: 20250406, end: 20250429

REACTIONS (2)
  - Febrile neutropenia [Fatal]
  - Pneumonia [Fatal]

NARRATIVE: CASE EVENT DATE: 20250414
